FAERS Safety Report 7492119-6 (Version None)
Quarter: 2011Q2

REPORT INFORMATION
  Report Type: 
  Country: None (occurrence: None)
  Receive Date: 20110511
  Receipt Date: 20110504
  Transmission Date: 20111010
  Serious: Yes (Hospitalization, Other)
  Sender: FDA-Public Use
  Company Number: 2008-187211-NL

PATIENT
  Age: 29 Year
  Sex: Female
  Weight: 95.709 kg

DRUGS (6)
  1. ALTACE [Concomitant]
  2. NAPROXIN [Concomitant]
  3. METFORMIN HCL [Concomitant]
  4. NUVARING [Suspect]
     Indication: CONTRACEPTION
     Dosage: 1 DF;Q3W;VAG
     Route: 067
     Dates: start: 20070801, end: 20070930
  5. NUVARING [Suspect]
     Indication: DYSMENORRHOEA
     Dosage: 1 DF;Q3W;VAG
     Route: 067
     Dates: start: 20070801, end: 20070930
  6. NUVARING [Suspect]
     Indication: MENORRHAGIA
     Dosage: 1 DF;Q3W;VAG
     Route: 067
     Dates: start: 20070801, end: 20070930

REACTIONS (5)
  - MENORRHAGIA [None]
  - DEEP VEIN THROMBOSIS [None]
  - UTERINE DISORDER [None]
  - UTERINE LEIOMYOMA [None]
  - POLYP [None]
